FAERS Safety Report 9853234 (Version 1)
Quarter: 2014Q1

REPORT INFORMATION
  Report Type: Spontaneous
  Country: FR (occurrence: FR)
  Receive Date: 20140129
  Receipt Date: 20140129
  Transmission Date: 20141002
  Serious: Yes (Hospitalization)
  Sender: FDA-Public Use
  Company Number: FR-ASTRAZENECA-2014SE05444

PATIENT
  Age: 55 Year
  Sex: Male

DRUGS (4)
  1. MOPRAL [Suspect]
     Dosage: DAILY
     Route: 048
     Dates: start: 20050801, end: 20050822
  2. TAZOCILLINE [Suspect]
     Route: 041
     Dates: start: 20050807, end: 20050822
  3. EQUANIL [Suspect]
     Indication: DELIRIUM TREMENS
     Route: 048
     Dates: start: 20050801, end: 20050822
  4. RIVOTRIL [Concomitant]

REACTIONS (2)
  - Pancreatitis acute [Recovered/Resolved]
  - Agranulocytosis [Recovered/Resolved]
